FAERS Safety Report 15834538 (Version 3)
Quarter: 2019Q3

REPORT INFORMATION
  Report Type: Spontaneous
  Country: CA (occurrence: CA)
  Receive Date: 20190116
  Receipt Date: 20190912
  Transmission Date: 20191004
  Serious: Yes (Death, Hospitalization, Other)
  Sender: FDA-Public Use
  Company Number: CA-PFIZER INC-2018536878

PATIENT
  Age: 92 Year
  Sex: Female

DRUGS (2)
  1. ELIQUIS [Suspect]
     Active Substance: APIXABAN
     Dosage: 2.5 MG, BID
     Route: 048
     Dates: start: 201708, end: 20180109
  2. DALTEPARIN SODIUM [Suspect]
     Active Substance: DALTEPARIN SODIUM
     Dosage: UNK
     Route: 065
     Dates: start: 201708, end: 20180109

REACTIONS (5)
  - Gastrointestinal haemorrhage [Unknown]
  - Off label use [Unknown]
  - Gastrointestinal disorder [Fatal]
  - Haemoglobin decreased [Unknown]
  - Contraindicated product administered [Unknown]

NARRATIVE: CASE EVENT DATE: 20180110
